FAERS Safety Report 8470819-9 (Version None)
Quarter: 2012Q2

REPORT INFORMATION
  Report Type: 
  Country: None (occurrence: None)
  Receive Date: 20120627
  Receipt Date: 20120618
  Transmission Date: 20120825
  Serious: Yes (Hospitalization)
  Sender: FDA-Public Use
  Company Number: CA-JNJFOC-20120608792

PATIENT
  Sex: Female
  Weight: 54 kg

DRUGS (3)
  1. IMURAN [Concomitant]
     Route: 065
  2. REMICADE [Suspect]
     Indication: CROHN'S DISEASE
     Dosage: ON INDUCTION DOSE
     Route: 042
  3. PANTOPRAZOLE [Concomitant]
     Route: 065

REACTIONS (1)
  - GASTROINTESTINAL HAEMORRHAGE [None]
